FAERS Safety Report 5667370-8 (Version None)
Quarter: 2008Q1

REPORT INFORMATION
  Report Type: 
  Country: None (occurrence: None)
  Receive Date: 20080315
  Receipt Date: 20080121
  Transmission Date: 20080703
  Serious: No
  Sender: FDA-Public Use
  Company Number: US-ABBOTT-08P-163-0434643-00

PATIENT
  Sex: Female
  Weight: 64.014 kg

DRUGS (7)
  1. HUMIRA [Suspect]
     Indication: CROHN'S DISEASE
     Route: 058
     Dates: start: 20080105, end: 20080105
  2. HUMIRA [Suspect]
     Route: 058
     Dates: start: 20080122, end: 20080122
  3. HUMIRA [Suspect]
     Route: 058
  4. COLASOL [Concomitant]
     Indication: CROHN'S DISEASE
     Route: 048
  5. AZATHIOPRINE [Concomitant]
     Indication: CROHN'S DISEASE
     Route: 048
  6. PREDNISONE [Concomitant]
     Indication: CROHN'S DISEASE
     Route: 048
  7. BLOOD PRESSURE MEDICATION [Concomitant]
     Indication: CROHN'S DISEASE
     Route: 048

REACTIONS (2)
  - NASOPHARYNGITIS [None]
  - PYREXIA [None]
